FAERS Safety Report 5010930-8 (Version None)
Quarter: 2006Q2

REPORT INFORMATION
  Report Type: 
  Country: None (occurrence: None)
  Receive Date: 20060525
  Receipt Date: 19981216
  Transmission Date: 20061013
  Serious: Yes (Other)
  Sender: FDA-Public Use
  Company Number: DE-BRISTOL-MYERS SQUIBB COMPANY-13384987

PATIENT
  Sex: Female
  Weight: 58 kg

DRUGS (2)
  1. TAXOL [Suspect]
     Indication: BREAST CANCER
     Route: 042
     Dates: start: 19980728
  2. CARBOPLATIN [Suspect]
     Indication: BREAST CANCER

REACTIONS (3)
  - ARTHRALGIA [None]
  - PARAESTHESIA [None]
  - RENAL FAILURE [None]
